FAERS Safety Report 10530037 (Version 1)
Quarter: 2014Q4

REPORT INFORMATION
  Report Type: Spontaneous
  Country: US (occurrence: None)
  Receive Date: 20141020
  Receipt Date: 20141020
  Transmission Date: 20150528
  Serious: Yes (Disabling)
  Sender: FDA-Public Use
  Company Number: None

PATIENT
  Age: 21 Year
  Sex: Male
  Weight: 80 kg

DRUGS (1)
  1. PROSCAR [Suspect]
     Active Substance: FINASTERIDE
     Indication: ALOPECIA
     Dosage: 1/4 OF THE PILL PER DAY
     Route: 048
     Dates: start: 20141016, end: 20141017

REACTIONS (3)
  - Libido decreased [None]
  - Depression [None]
  - Fear [None]

NARRATIVE: CASE EVENT DATE: 20141018
